FAERS Safety Report 5500794-8 (Version None)
Quarter: 2007Q4

REPORT INFORMATION
  Report Type: 
  Country: None (occurrence: None)
  Receive Date: 20071029
  Receipt Date: 20071022
  Transmission Date: 20080405
  Serious: Yes (Other)
  Sender: FDA-Public Use
  Company Number: A0686382A

PATIENT
  Age: 41 Year
  Sex: Female

DRUGS (3)
  1. LAMICTAL [Suspect]
     Indication: BIPOLAR II DISORDER
     Route: 048
     Dates: end: 20070821
  2. LEXAPRO [Concomitant]
     Dosage: 20MG PER DAY
     Route: 048
     Dates: start: 20050428, end: 20070911
  3. RITALIN [Concomitant]
     Dosage: 5MG IN THE MORNING
     Route: 048
     Dates: start: 20050116, end: 20070911

REACTIONS (5)
  - HYPOMANIA [None]
  - MYALGIA [None]
  - PNEUMONIA PRIMARY ATYPICAL [None]
  - RASH [None]
  - WHITE BLOOD CELL COUNT INCREASED [None]
